FAERS Safety Report 8225896-7 (Version None)
Quarter: 2012Q1

REPORT INFORMATION
  Report Type: 
  Country: None (occurrence: None)
  Receive Date: 20120321
  Receipt Date: 20120313
  Transmission Date: 20120608
  Serious: Yes (Other)
  Sender: FDA-Public Use
  Company Number: US-ROCHE-618104

PATIENT
  Sex: Male
  Weight: 93 kg

DRUGS (12)
  1. VICODIN [Concomitant]
     Indication: PAIN
  2. MAALOX TC [Concomitant]
     Indication: PRODUCT USED FOR UNKNOWN INDICATION
     Dates: start: 20081115
  3. AVASTIN [Suspect]
     Dosage: PERMANENTLY DISCONTINUED ON 23 FEB 2009.
     Route: 042
  4. ROFERON-A [Suspect]
     Indication: RENAL CELL CARCINOMA
     Dosage: WITHHELD ON 17/FEB/2009
     Route: 058
  5. SIMVASTATIN [Concomitant]
     Indication: HYPERCHOLESTEROLAEMIA
  6. AVASTIN [Suspect]
     Indication: RENAL CELL CARCINOMA
     Dosage: WITHHELD ON 17 FEB 2009
     Route: 042
     Dates: start: 20081209, end: 20090223
  7. LISINOPRIL [Concomitant]
     Indication: HYPERTENSION
  8. ROFERON-A [Suspect]
     Route: 065
  9. FERROUS SULFATE TAB [Concomitant]
     Indication: ANAEMIA
  10. OMEGA-3 TRIGLYCERIDES [Concomitant]
     Indication: PRODUCT USED FOR UNKNOWN INDICATION
     Dates: start: 20060101
  11. PHOSPHO-SODA [Concomitant]
     Indication: PRODUCT USED FOR UNKNOWN INDICATION
     Dates: start: 20081125
  12. GLIPIZIDE [Concomitant]
     Indication: DIABETES MELLITUS

REACTIONS (1)
  - CEREBRAL INFARCTION [None]
